FAERS Safety Report 4358997-4 (Version None)
Quarter: 2004Q2

REPORT INFORMATION
  Report Type: 
  Country: None (occurrence: None)
  Receive Date: 20040512
  Receipt Date: 20040429
  Transmission Date: 20050107
  Serious: Yes (Life-Threatening, Hospitalization)
  Sender: FDA-Public Use
  Company Number: 2004-BP-03196RO

PATIENT
  Age: 49 Year
  Sex: Male
  Weight: 131.5 kg

DRUGS (6)
  1. LITHIUM CARBONATE [Suspect]
     Indication: BIPOLAR DISORDER
     Dosage: 900 MG/DAY (300 MG), PO
     Route: 048
  2. ENALAPRIL MALEATE [Concomitant]
  3. TOPAMAX [Concomitant]
  4. PRAVACHOL [Concomitant]
  5. PROXAC (FLUOXETINE HYDROCHLORIDE) [Concomitant]
  6. VALIUM [Concomitant]

REACTIONS (8)
  - CARDIO-RESPIRATORY ARREST [None]
  - DIARRHOEA [None]
  - HEADACHE [None]
  - LOSS OF CONSCIOUSNESS [None]
  - THERAPEUTIC AGENT TOXICITY [None]
  - TREMOR [None]
  - VIRAL INFECTION [None]
  - VISION BLURRED [None]
